FAERS Safety Report 7519162-2 (Version None)
Quarter: 2011Q2

REPORT INFORMATION
  Report Type: 
  Country: None (occurrence: None)
  Receive Date: 20110602
  Receipt Date: 20110601
  Transmission Date: 20111010
  Serious: Yes (Death)
  Sender: FDA-Public Use
  Company Number: CO-ROCHE-780216

PATIENT
  Sex: Male

DRUGS (1)
  1. MIRCERA [Suspect]
     Route: 058
     Dates: start: 20100315

REACTIONS (3)
  - SEPTIC SHOCK [None]
  - GASTROINTESTINAL INFECTION [None]
  - PNEUMONIA [None]
